FAERS Safety Report 5708586-1 (Version None)
Quarter: 2008Q2

REPORT INFORMATION
  Report Type: 
  Country: None (occurrence: None)
  Receive Date: 20080417
  Receipt Date: 20080402
  Transmission Date: 20081010
  Serious: Yes (Hospitalization)
  Sender: FDA-Public Use
  Company Number: FI-GENENTECH-258912

PATIENT
  Sex: Female
  Weight: 64 kg

DRUGS (3)
  1. BEVACIZUMAB [Suspect]
     Indication: OVARIAN CANCER
     Dosage: 480 MG, Q3W
     Route: 042
     Dates: start: 20071127
  2. CARBOPLATIN [Suspect]
     Indication: OVARIAN CANCER
     Dosage: 610 MG, UNK
     Route: 042
     Dates: start: 20071030
  3. PACLITAXEL [Suspect]
     Indication: OVARIAN CANCER
     Dosage: 300 MG, UNK
     Route: 042
     Dates: start: 20071030

REACTIONS (1)
  - PYREXIA [None]
